FAERS Safety Report 5695067-7 (Version None)
Quarter: 2008Q2

REPORT INFORMATION
  Report Type: 
  Country: None (occurrence: None)
  Receive Date: 20080404
  Receipt Date: 20080305
  Transmission Date: 20081010
  Serious: No
  Sender: FDA-Public Use
  Company Number: US-BAYER-200816113NA

PATIENT
  Sex: Female
  Weight: 64 kg

DRUGS (2)
  1. ULTRAVIST 150 [Suspect]
     Indication: COMPUTERISED TOMOGRAM ABDOMEN
     Route: 042
     Dates: start: 20080304, end: 20080304
  2. EZ-EM READICAT [Concomitant]

REACTIONS (2)
  - PRURITUS [None]
  - URTICARIA [None]
